FAERS Safety Report 5392738-7 (Version None)
Quarter: 2007Q3

REPORT INFORMATION
  Report Type: 
  Country: None (occurrence: None)
  Receive Date: 20070720
  Receipt Date: 20070710
  Transmission Date: 20080115
  Serious: Yes (Hospitalization, Other)
  Sender: FDA-Public Use
  Company Number: FR-PFIZER INC-2007057336

PATIENT
  Sex: Female

DRUGS (7)
  1. ATORVASTATIN CALCIUM [Suspect]
     Route: 048
     Dates: start: 20070515, end: 20070525
  2. PERINDOPRIL ERBUMINE [Suspect]
     Route: 048
     Dates: start: 20070513, end: 20070521
  3. SECTRAL [Suspect]
     Route: 048
     Dates: start: 20070515, end: 20070525
  4. PLAVIX [Suspect]
     Route: 048
  5. NEXIUM [Suspect]
     Route: 048
  6. LASIX [Concomitant]
  7. ADANCOR [Concomitant]

REACTIONS (6)
  - CHEILITIS [None]
  - EOSINOPHILIA [None]
  - ERYTHEMA [None]
  - EYELID OEDEMA [None]
  - HYPERTHERMIA [None]
  - PRURITUS [None]
